FAERS Safety Report 9181563 (Version 2)
Quarter: 2013Q4

REPORT INFORMATION
  Report Type: Spontaneous
  Country: US (occurrence: US)
  Receive Date: 20130322
  Receipt Date: 20131114
  Transmission Date: 20140711
  Serious: Yes (Other)
  Sender: FDA-Public Use
  Company Number: US-PFIZER INC-2013091534

PATIENT
  Age: 49 Year
  Sex: Female

DRUGS (4)
  1. ZOLOFT [Suspect]
     Indication: DEPRESSION
     Dosage: 100 MG, UNK
     Dates: start: 2008, end: 2011
  2. LEXAPRO [Suspect]
     Indication: DEPRESSION
     Dosage: 10 MG, UNK
     Dates: start: 2008, end: 2011
  3. AMITRIPTYLINE [Suspect]
     Indication: DEPRESSION
     Dosage: 25 MG, UNK
     Dates: start: 2008, end: 2011
  4. WARFARIN [Concomitant]
     Indication: THROMBOSIS PROPHYLAXIS
     Dosage: 8 MG, EVERY TUESDAY, WEDNESDAY, FRIDAY, SATURDAY AND SUNDAY
     Dates: start: 2002

REACTIONS (6)
  - Glucose tolerance impaired [Not Recovered/Not Resolved]
  - Oedema peripheral [Not Recovered/Not Resolved]
  - Weight increased [Not Recovered/Not Resolved]
  - Increased appetite [Recovered/Resolved]
  - Asthenia [Not Recovered/Not Resolved]
  - Muscle spasms [Not Recovered/Not Resolved]
